FAERS Safety Report 19028335 (Version 1)
Quarter: 2021Q1

REPORT INFORMATION
  Report Type: Spontaneous
  Country: US (occurrence: US)
  Receive Date: 20210319
  Receipt Date: 20210319
  Transmission Date: 20210420
  Serious: No
  Sender: FDA-Public Use
  Company Number: US-CYCLE PHARMACEUTICALS LTD-2021-CYC-000005

PATIENT

DRUGS (2)
  1. DICLO GEL 1% PAK [Concomitant]
     Active Substance: DICLOFENAC SODIUM\ISOPROPYL ALCOHOL
  2. NITYR [Suspect]
     Active Substance: NITISINONE
     Indication: TYROSINAEMIA
     Dosage: 6 MG, BID
     Route: 048
     Dates: start: 20181026

REACTIONS (1)
  - Psychomotor hyperactivity [Unknown]
